FAERS Safety Report 4684639-4 (Version None)
Quarter: 2005Q2

REPORT INFORMATION
  Report Type: 
  Country: None (occurrence: None)
  Receive Date: 20050603
  Receipt Date: 20050519
  Transmission Date: 20051028
  Serious: Yes (Other)
  Sender: FDA-Public Use
  Company Number: BR-2005-008457

PATIENT
  Age: 52 Year
  Sex: Female

DRUGS (2)
  1. BETAFERON (INTERFEON BETA-1B)INJECTION, 250?G [Suspect]
     Indication: MULTIPLE SCLEROSIS
     Dosage: 8 MIU, SUBCUTANEOUS
     Route: 058
     Dates: start: 20020601, end: 20040801
  2. ANTIBIOTICS [Concomitant]

REACTIONS (1)
  - CELLULITIS [None]
